FAERS Safety Report 22295208 (Version 1)
Quarter: 2023Q2

REPORT INFORMATION
  Report Type: Spontaneous
  Country: US (occurrence: None)
  Receive Date: 20230508
  Receipt Date: 20230508
  Transmission Date: 20230722
  Serious: Yes (Other)
  Sender: FDA-Public Use
  Company Number: US-FARMAPROD-202304-0974

PATIENT
  Sex: Female
  Weight: 76.363 kg

DRUGS (27)
  1. OXERVATE [Suspect]
     Active Substance: CENEGERMIN-BKBJ
     Indication: Neurotrophic keratopathy
     Route: 047
     Dates: start: 20230404
  2. SERTRALINE HYDROCHLORIDE [Concomitant]
     Active Substance: SERTRALINE HYDROCHLORIDE
  3. NYSTATIN [Concomitant]
     Active Substance: NYSTATIN
  4. NYSTATIN [Concomitant]
     Active Substance: NYSTATIN
  5. VITAMINS [Concomitant]
     Active Substance: VITAMINS
  6. DEPO-PROVERA [Concomitant]
     Active Substance: MEDROXYPROGESTERONE ACETATE
  7. METRONIDAZOLE [Concomitant]
     Active Substance: METRONIDAZOLE
  8. BUPRENORPHINE [Concomitant]
     Active Substance: BUPRENORPHINE
     Dosage: 15 MCG / HOUR WEEKLY
  9. ERYTHROMYCIN [Concomitant]
     Active Substance: ERYTHROMYCIN
  10. TRAZODONE HCL [Concomitant]
     Active Substance: TRAZODONE HYDROCHLORIDE
  11. PREGABALIN [Concomitant]
     Active Substance: PREGABALIN
  12. NEOMYCIN-POLYMYXIN-DEXAMETH [Concomitant]
  13. DOXYCYCLINE HYCLATE [Concomitant]
     Active Substance: DOXYCYCLINE HYCLATE
  14. FLUTICASONE PROPIONATE [Concomitant]
     Active Substance: FLUTICASONE PROPIONATE
  15. ONDANSETRON [Concomitant]
     Active Substance: ONDANSETRON
     Dosage: RAPID DISSOLVE
  16. VALACYCLOVIR [Concomitant]
     Active Substance: VALACYCLOVIR HYDROCHLORIDE
  17. TRETINOIN [Concomitant]
     Active Substance: TRETINOIN
  18. FAMOTIDINE [Concomitant]
     Active Substance: FAMOTIDINE
  19. IPRATROPIUM BROMIDE [Concomitant]
     Active Substance: IPRATROPIUM BROMIDE\IPRATROPIUM BROMIDE ANHYDROUS
  20. SULFACETAMIDE SODIUM [Concomitant]
     Active Substance: SULFACETAMIDE SODIUM
  21. OLOPATADINE HYDROCHLORIDE [Concomitant]
     Active Substance: OLOPATADINE HYDROCHLORIDE
  22. HYDROCORTISONE [Concomitant]
     Active Substance: HYDROCORTISONE
  23. MEDROXYPROGESTERONE ACETATE [Concomitant]
     Active Substance: MEDROXYPROGESTERONE ACETATE
  24. TRIAMCINOLONE ACETONIDE [Concomitant]
     Active Substance: TRIAMCINOLONE ACETONIDE
  25. CLOTRIMAZOLE [Concomitant]
     Active Substance: CLOTRIMAZOLE
  26. MUPIROCIN [Concomitant]
     Active Substance: MUPIROCIN
  27. PROVENTIL [Concomitant]
     Active Substance: ALBUTEROL
     Dosage: HYDROFLUOROALKANE AEROSOL WITH ADPTER

REACTIONS (3)
  - Surgery [Unknown]
  - Eye pain [Unknown]
  - Wrong technique in product usage process [Unknown]
